FAERS Safety Report 4344355-5 (Version None)
Quarter: 2004Q2

REPORT INFORMATION
  Report Type: 
  Country: None (occurrence: None)
  Receive Date: 20040419
  Receipt Date: 20040408
  Transmission Date: 20050107
  Serious: Yes (Other)
  Sender: FDA-Public Use
  Company Number: 200411705BCC

PATIENT
  Sex: Female
  Weight: 90.7194 kg

DRUGS (2)
  1. ASPIRIN [Suspect]
     Indication: PROPHYLAXIS
     Dosage: 650 MG, QD, ORAL
     Route: 048
  2. HYDROCHLOROTHIAZIDE [Concomitant]

REACTIONS (3)
  - HAEMATEMESIS [None]
  - LOSS OF CONSCIOUSNESS [None]
  - ULCER HAEMORRHAGE [None]
